FAERS Safety Report 8422341-3 (Version None)
Quarter: 2012Q2

REPORT INFORMATION
  Report Type: 
  Country: None (occurrence: None)
  Receive Date: 20120601
  Receipt Date: 20120518
  Transmission Date: 20120825
  Serious: Yes (Other)
  Sender: FDA-Public Use
  Company Number: DSA_57520_2012

PATIENT
  Sex: Female

DRUGS (3)
  1. ALLESTRA [Concomitant]
  2. MULTI-VITAMIN [Concomitant]
  3. WELLBUTRIN XL [Suspect]
     Indication: BINGE EATING
     Dosage: (300 MG QD ORAL)
     Route: 048
     Dates: start: 20120510, end: 20120514

REACTIONS (5)
  - MUSCLE TWITCHING [None]
  - OFF LABEL USE [None]
  - CONVULSION [None]
  - TONGUE DISORDER [None]
  - SYNCOPE [None]
